FAERS Safety Report 9276686 (Version 3)
Quarter: 2013Q3

REPORT INFORMATION
  Report Type: Spontaneous
  Country: US (occurrence: US)
  Receive Date: 20130507
  Receipt Date: 20130709
  Transmission Date: 20140515
  Serious: Yes (Other)
  Sender: FDA-Public Use
  Company Number: PHEH2013US009823

PATIENT
  Age: 45 Year
  Sex: Female
  Weight: 61.2 kg

DRUGS (8)
  1. GILENYA [Suspect]
     Indication: RELAPSING-REMITTING MULTIPLE SCLEROSIS
     Dosage: 0.5 MG, QD
     Route: 048
     Dates: start: 20130404
  2. LUNESTA [Concomitant]
  3. XANAX [Concomitant]
  4. MULTIVITAMINS [Concomitant]
  5. CALCIUM [Concomitant]
  6. TRAMADOL [Concomitant]
  7. NUTRITION SUPPLEMENTS [Concomitant]
  8. ZYRTEC [Concomitant]

REACTIONS (1)
  - Bone formation decreased [Not Recovered/Not Resolved]
